FAERS Safety Report 14365030 (Version 1)
Quarter: 2018Q1

REPORT INFORMATION
  Report Type: Spontaneous
  Country: US (occurrence: US)
  Receive Date: 20180108
  Receipt Date: 20180108
  Transmission Date: 20180509
  Serious: Yes (Death)
  Sender: FDA-Public Use
  Company Number: US-ROCHE-1952032

PATIENT
  Age: 73 Year
  Sex: Female
  Weight: 63.9 kg

DRUGS (1)
  1. ACTIVASE [Suspect]
     Active Substance: ALTEPLASE
     Indication: CEREBROVASCULAR ACCIDENT
     Route: 042
     Dates: start: 20170618

REACTIONS (2)
  - Haemorrhage [Fatal]
  - Product quality issue [Fatal]

NARRATIVE: CASE EVENT DATE: 20170618
